FAERS Safety Report 18060948 (Version 2)
Quarter: 2021Q2

REPORT INFORMATION
  Report Type: Spontaneous
  Country: US (occurrence: US)
  Receive Date: 20200723
  Receipt Date: 20210421
  Transmission Date: 20210717
  Serious: Yes (Other)
  Sender: FDA-Public Use
  Company Number: US-MYLANLABS-2020M1066534

PATIENT
  Age: 68 Year
  Sex: Female
  Weight: 108 kg

DRUGS (14)
  1. VALSARTAN. [Suspect]
     Active Substance: VALSARTAN
     Indication: HYPERTENSION
     Dosage: 320 MILLIGRAM
     Dates: start: 20170621, end: 20170919
  2. VALSARTAN. [Suspect]
     Active Substance: VALSARTAN
     Dosage: 320 MILLIGRAM
     Dates: start: 20170915, end: 20171214
  3. LOSARTAN POTASSIUM. [Suspect]
     Active Substance: LOSARTAN POTASSIUM
     Indication: HYPERTENSION
     Dosage: 100 MILLIGRAM
     Dates: start: 20180801, end: 20180831
  4. LOSARTAN POTASSIUM. [Suspect]
     Active Substance: LOSARTAN POTASSIUM
     Dosage: 100 MILLIGRAM
     Dates: start: 20180830, end: 20180929
  5. LOSARTAN POTASSIUM. [Suspect]
     Active Substance: LOSARTAN POTASSIUM
     Dosage: 100 MILLIGRAM
     Dates: start: 20181024, end: 20181123
  6. ALPRAZOLAM. [Concomitant]
     Active Substance: ALPRAZOLAM
     Indication: ANXIETY
     Dosage: 0.25MG, 0.5 MG
     Dates: start: 20111018, end: 201909
  7. VALSARTAN TABLETS, USP [Suspect]
     Active Substance: VALSARTAN
     Dosage: 320 MILLIGRAM
     Dates: start: 20170320, end: 20170618
  8. VALSARTAN. [Suspect]
     Active Substance: VALSARTAN
     Dosage: 320 MILLIGRAM
     Dates: start: 20180322, end: 20180620
  9. VALSARTAN. [Suspect]
     Active Substance: VALSARTAN
     Dosage: 320 MILLIGRAM
     Dates: start: 20180625, end: 20180923
  10. LOSARTAN POTASSIUM. [Suspect]
     Active Substance: LOSARTAN POTASSIUM
     Dosage: 100 MILLIGRAM
     Dates: start: 20180925, end: 20181025
  11. VALSARTAN TABLETS, USP [Suspect]
     Active Substance: VALSARTAN
     Indication: HYPERTENSION
     Dosage: 320 MILLIGRAM
     Dates: start: 20170124, end: 20170223
  12. MELOXICAM. [Concomitant]
     Active Substance: MELOXICAM
     Indication: PAIN
     Dosage: 15 MILLIGRAM
     Dates: start: 20170223, end: 201908
  13. VALSARTAN TABLETS, USP [Suspect]
     Active Substance: VALSARTAN
     Dosage: 320 MILLIGRAM
     Dates: start: 20170221, end: 20170323
  14. VALSARTAN. [Suspect]
     Active Substance: VALSARTAN
     Dosage: 320 MILLIGRAM
     Dates: start: 20171219, end: 20180319

REACTIONS (1)
  - Uterine cancer [Unknown]

NARRATIVE: CASE EVENT DATE: 20190227
